FAERS Safety Report 24463409 (Version 3)
Quarter: 2024Q4

REPORT INFORMATION
  Report Type: Report from Study
  Country: US (occurrence: US)
  Receive Date: 20241018
  Receipt Date: 20241127
  Transmission Date: 20250115
  Serious: Yes (Other)
  Sender: AGIOS PHARMACEUTICALS
  Company Number: US-AGIOS-2410US03921

PATIENT
  Sex: Female
  Weight: 90 kg

DRUGS (1)
  1. MITAPIVAT [Suspect]
     Active Substance: MITAPIVAT
     Indication: Pyruvate kinase deficiency anaemia
     Dosage: 20 MILLIGRAM, BID
     Route: 048
     Dates: start: 20231026

REACTIONS (4)
  - Pulmonary hypertension [Recovering/Resolving]
  - Productive cough [Recovered/Resolved]
  - Dyspnoea [Recovering/Resolving]
  - COVID-19 [Unknown]
